FAERS Safety Report 6104074-1 (Version None)
Quarter: 2009Q1

REPORT INFORMATION
  Report Type: 
  Country: None (occurrence: None)
  Receive Date: 20090302
  Receipt Date: 20090217
  Transmission Date: 20090719
  Serious: Yes (Other)
  Sender: FDA-Public Use
  Company Number: 2009AP000579

PATIENT
  Age: 73 Year
  Sex: Female

DRUGS (5)
  1. RANITIDINE HYDROCHLORIDE [Suspect]
     Indication: OESOPHAGEAL ULCER
     Dosage: 150 MG; BID; PO
     Route: 048
  2. ACETYLSALICYLIC ACID SRT [Concomitant]
  3. ATORVASTATIN CALCIUM [Concomitant]
  4. BENDROFLUMETHIAZIDE (BENDROFLUMETHIAZIDE) [Concomitant]
  5. SIMVASTATIN [Concomitant]

REACTIONS (4)
  - DYSPEPSIA [None]
  - ERUCTATION [None]
  - FOOD AVERSION [None]
  - NAUSEA [None]
